FAERS Safety Report 5302109-7 (Version None)
Quarter: 2007Q2

REPORT INFORMATION
  Report Type: 
  Country: None (occurrence: None)
  Receive Date: 20070419
  Receipt Date: 20070413
  Transmission Date: 20071010
  Serious: Yes (Other)
  Sender: FDA-Public Use
  Company Number: JP-JPN-A200701772

PATIENT
  Age: 52 Year
  Sex: Male

DRUGS (6)
  1. PAXIL [Suspect]
     Indication: DRUG USE FOR UNKNOWN INDICATION
     Dosage: 240MG PER DAY
     Route: 048
     Dates: start: 20070406, end: 20070406
  2. RISPERDAL [Suspect]
     Route: 048
     Dates: start: 20070406, end: 20070406
  3. AKINETON [Suspect]
     Route: 065
     Dates: start: 20070406, end: 20070406
  4. LEXOTAN [Suspect]
     Route: 048
     Dates: start: 20070406, end: 20070406
  5. DEPAKENE [Suspect]
     Route: 048
     Dates: start: 20070406, end: 20070406
  6. ROHYPNOL [Suspect]
     Route: 065
     Dates: start: 20070406, end: 20070406

REACTIONS (3)
  - COMA [None]
  - OVERDOSE [None]
  - SUICIDE ATTEMPT [None]
